FAERS Safety Report 13002791 (Version 1)
Quarter: 2016Q4

REPORT INFORMATION
  Report Type: Spontaneous
  Country: US (occurrence: US)
  Receive Date: 20161206
  Receipt Date: 20161206
  Transmission Date: 20170207
  Serious: No
  Sender: FDA-Public Use
  Company Number: US-BIOMARINAP-US-2016-112054

PATIENT
  Age: 24 Year
  Sex: Male

DRUGS (2)
  1. VIMIZIM [Suspect]
     Active Substance: ELOSULFASE ALFA
     Indication: MUCOPOLYSACCHARIDOSIS IV
     Dosage: 85 MG, UNK
     Route: 042
     Dates: start: 20150518
  2. VIMIZIM [Suspect]
     Active Substance: ELOSULFASE ALFA
     Dosage: 85 MG, QW
     Route: 042
     Dates: start: 20160519, end: 20161021

REACTIONS (2)
  - Acne [Unknown]
  - Malaise [Unknown]

NARRATIVE: CASE EVENT DATE: 20161130
